FAERS Safety Report 7308510-4 (Version None)
Quarter: 2011Q1

REPORT INFORMATION
  Report Type: 
  Country: None (occurrence: None)
  Receive Date: 20110223
  Receipt Date: 20101220
  Transmission Date: 20110831
  Serious: Yes (Hospitalization, Other)
  Sender: FDA-Public Use
  Company Number: US-BAYER-201027657NA

PATIENT
  Sex: Female

DRUGS (18)
  1. VALIUM [Concomitant]
  2. ZOFRAN [Concomitant]
  3. MIRALAX [Concomitant]
  4. YASMIN [Suspect]
     Indication: ORAL CONTRACEPTION
  5. OCELLA [Suspect]
     Indication: ORAL CONTRACEPTION
  6. UNCODEABLE ^UNCLASSIFIABLE^ [Concomitant]
  7. YAZ [Suspect]
     Indication: ORAL CONTRACEPTION
  8. OCELLA [Suspect]
     Indication: MENSTRUAL CYCLE MANAGEMENT
     Route: 048
     Dates: start: 20060301, end: 20090715
  9. REGLAN [Concomitant]
     Dosage: 10 MG, UNK
  10. YASMIN [Suspect]
     Indication: MENSTRUAL CYCLE MANAGEMENT
     Route: 048
     Dates: start: 20060301, end: 20090715
  11. LORTAB [Concomitant]
  12. YAZ [Suspect]
     Indication: MENSTRUAL CYCLE MANAGEMENT
     Dosage: UNK UNK, UNK
     Route: 048
     Dates: start: 20060301, end: 20090715
  13. MOM [Concomitant]
  14. CYMBALTA [Concomitant]
     Indication: DEPRESSION
     Dosage: 30 MG, UNK
  15. NEXIUM [Concomitant]
     Dosage: 40 MG, UNK
  16. BENTYL [Concomitant]
     Dosage: 20 MG, UNK
  17. DARVOCET [Concomitant]
  18. DILAUDID [Concomitant]

REACTIONS (11)
  - NAUSEA [None]
  - CHOLECYSTITIS CHRONIC [None]
  - ANXIETY [None]
  - BIPOLAR I DISORDER [None]
  - SUICIDE ATTEMPT [None]
  - ABDOMINAL PAIN UPPER [None]
  - BACK PAIN [None]
  - PROCEDURAL PAIN [None]
  - VOMITING [None]
  - GASTROOESOPHAGEAL REFLUX DISEASE [None]
  - CHOLESTEROSIS [None]
